FAERS Safety Report 17036503 (Version 4)
Quarter: 2020Q3

REPORT INFORMATION
  Report Type: Spontaneous
  Country: US (occurrence: US)
  Receive Date: 20191115
  Receipt Date: 20200925
  Transmission Date: 20201102
  Serious: Yes (Hospitalization)
  Sender: FDA-Public Use
  Company Number: US-VERTEX PHARMACEUTICALS-2019-010925

PATIENT
  Sex: Female

DRUGS (2)
  1. CAYSTON [Concomitant]
     Active Substance: AZTREONAM
     Dosage: 75 MG, THREE TIMES A DAY
  2. ORKAMBI [Suspect]
     Active Substance: IVACAFTOR\LUMACAFTOR
     Indication: CYSTIC FIBROSIS
     Dosage: 100/125 MG, BID
     Route: 048
     Dates: start: 20170421

REACTIONS (2)
  - Infective pulmonary exacerbation of cystic fibrosis [Recovered/Resolved]
  - Respiratory tract infection viral [Recovered/Resolved]

NARRATIVE: CASE EVENT DATE: 2019
